FAERS Safety Report 12489864 (Version 1)
Quarter: 2016Q2

REPORT INFORMATION
  Report Type: Spontaneous
  Country: US (occurrence: US)
  Receive Date: 20160622
  Receipt Date: 20160622
  Transmission Date: 20160815
  Serious: No
  Sender: FDA-Public Use
  Company Number: US-UPSHER-SMITH LABORATORIES, INC.-15002292

PATIENT
  Age: 65 Year
  Sex: Male

DRUGS (7)
  1. OLIVE LEAVES EXTRACT [Concomitant]
     Indication: IMMUNE ENHANCEMENT THERAPY
     Dosage: UNK
  2. MULTIVITAMIN [Concomitant]
     Active Substance: VITAMINS
     Dosage: UNK
  3. VITAMIN E [Concomitant]
     Active Substance: .ALPHA.-TOCOPHEROL
     Dosage: UNK
  4. B COMPLEX WITH C [Concomitant]
     Dosage: UNK
  5. NYAMYC [Suspect]
     Active Substance: NYSTATIN
     Indication: FUNGAL SKIN INFECTION
     Dosage: UNK, TID
     Route: 061
     Dates: start: 2013
  6. ECHINACEA [Concomitant]
     Active Substance: ECHINACEA, UNSPECIFIED
     Indication: IMMUNE ENHANCEMENT THERAPY
     Dosage: UNK
  7. GINKO BILOBA [Concomitant]
     Active Substance: GINKGO
     Dosage: UNK

REACTIONS (1)
  - Drug ineffective [Not Recovered/Not Resolved]

NARRATIVE: CASE EVENT DATE: 201507
